FAERS Safety Report 8826537 (Version 1)
Quarter: 2012Q4

REPORT INFORMATION
  Report Type: 
  Country: ZA (occurrence: ZA)
  Receive Date: 20121005
  Receipt Date: 20121005
  Transmission Date: 20130627
  Serious: Yes (Hospitalization)
  Sender: FDA-Public Use
  Company Number: ZA-ELI_LILLY_AND_COMPANY-ZA201210001913

PATIENT
  Sex: Female

DRUGS (2)
  1. HUMULIN 30% REGULAR, 70% NPH [Suspect]
     Indication: DIABETES MELLITUS
     Dosage: 44 u, each morning
     Route: 058
  2. HUMULIN 30% REGULAR, 70% NPH [Suspect]
     Dosage: 36 u, each evening
     Route: 058

REACTIONS (2)
  - Nerve injury [Recovering/Resolving]
  - Renal cyst [Recovering/Resolving]
